FAERS Safety Report 7829452-1 (Version None)
Quarter: 2011Q4

REPORT INFORMATION
  Report Type: 
  Country: None (occurrence: None)
  Receive Date: 20111020
  Receipt Date: 20111012
  Transmission Date: 20120403
  Serious: Yes (Hospitalization)
  Sender: FDA-Public Use
  Company Number: US-ASTRAZENECA-2011SE61445

PATIENT
  Age: 40 Year
  Sex: Female
  Weight: 92.1 kg

DRUGS (4)
  1. SEROQUEL [Suspect]
     Indication: BIPOLAR DISORDER
     Route: 048
  2. DEPACOTE [Concomitant]
     Indication: SLEEP DISORDER
  3. BENADRYL [Concomitant]
  4. DEPACOTE [Concomitant]
     Indication: TACHYPHRENIA

REACTIONS (7)
  - TACHYPHRENIA [None]
  - DRUG DOSE OMISSION [None]
  - DRUG INEFFECTIVE [None]
  - BIPOLAR DISORDER [None]
  - PARANOIA [None]
  - ILL-DEFINED DISORDER [None]
  - INSOMNIA [None]
